FAERS Safety Report 7987797-9 (Version None)
Quarter: 2011Q4

REPORT INFORMATION
  Report Type: 
  Country: None (occurrence: None)
  Receive Date: 20111216
  Receipt Date: 20101109
  Transmission Date: 20120403
  Serious: No
  Sender: FDA-Public Use
  Company Number: US-BRISTOL-MYERS SQUIBB COMPANY-15374762

PATIENT
  Age: 51 Year
  Sex: Female

DRUGS (3)
  1. ABILIFY [Suspect]
     Dosage: STARTED:4YRS AGO
  2. RESTORIL [Concomitant]
  3. ATIVAN [Concomitant]

REACTIONS (3)
  - HYPERHIDROSIS [None]
  - DISTURBANCE IN ATTENTION [None]
  - FEELING ABNORMAL [None]
